FAERS Safety Report 23793865 (Version 1)
Quarter: 2024Q2

REPORT INFORMATION
  Report Type: Spontaneous
  Country: SE (occurrence: SE)
  Receive Date: 20240429
  Receipt Date: 20240429
  Transmission Date: 20240715
  Serious: Yes (Other)
  Sender: FDA-Public Use
  Company Number: None

PATIENT
  Age: 33 Year
  Sex: Female
  Weight: 95 kg

DRUGS (4)
  1. CANDESARTAN CILEXETIL [Suspect]
     Active Substance: CANDESARTAN CILEXETIL
     Indication: Migraine
     Dosage: 8 MILLIGRAM, QD (8MG ONCE/DAY)
     Route: 048
     Dates: start: 20230906, end: 20231219
  2. ASPIRIN [Concomitant]
     Active Substance: ASPIRIN
     Indication: Migraine
     Dosage: 500-1000MG EVERY 6-8 HOURS DURING MIGRAINE ATTACKS
     Route: 048
     Dates: start: 20230101
  3. PROPIOMAZINE [Concomitant]
     Active Substance: PROPIOMAZINE
     Dosage: UNK, 1 TABLET IN THE EVENING
     Route: 048
     Dates: start: 20230501
  4. SUMATRIPTAN ACCORD [Concomitant]
     Indication: Migraine
     Dosage: UNK, 1 TABLET DURING MIGRAINE ATTACKS
     Route: 048
     Dates: start: 20180901

REACTIONS (6)
  - Intestinal haemorrhage [Unknown]
  - Gastrooesophageal reflux disease [Recovering/Resolving]
  - Irritable bowel syndrome [Unknown]
  - Dyspepsia [Recovering/Resolving]
  - Gastritis [Unknown]
  - Diarrhoea [Not Recovered/Not Resolved]

NARRATIVE: CASE EVENT DATE: 20230906
